FAERS Safety Report 8749669 (Version 3)
Quarter: 2012Q4

REPORT INFORMATION
  Report Type: Spontaneous
  Country: AR (occurrence: None)
  Receive Date: 20120808
  Receipt Date: 20120912
  Transmission Date: 20130627
  Serious: Yes (Death, Life-Threatening, Hospitalization, Other)
  Sender: FDA-Public Use
  Company Number: MPS1-1000748

PATIENT
  Age: 27 Year
  Sex: Male

DRUGS (4)
  1. ALDURAZYME [Suspect]
     Indication: MUCOPOLYSACCHARIDOSIS I
     Dosage: 7 vials
     Route: 042
     Dates: start: 20100804
  2. SILDENAFIL (SILDENAFIL) [Concomitant]
  3. DIGITALIS (DIGITALIS PURPUREA) [Concomitant]
  4. DIGOXIN (DIGOXIN) [Concomitant]

REACTIONS (14)
  - Hepatomegaly [None]
  - Hepatic haemorrhage [None]
  - Lung disorder [None]
  - Drug dose omission [None]
  - Pulmonary hypertension [None]
  - Respiratory distress [None]
  - Hypoxia [None]
  - Mitral valve stenosis [None]
  - Aortic valve incompetence [None]
  - Skeletal dysplasia [None]
  - No therapeutic response [None]
  - Hepatic congestion [None]
  - Cardiac arrest [None]
  - Pneumonia [None]
